FAERS Safety Report 8141742-4 (Version None)
Quarter: 2012Q1

REPORT INFORMATION
  Report Type: 
  Country: None (occurrence: None)
  Receive Date: 20120216
  Receipt Date: 20120206
  Transmission Date: 20120608
  Serious: Yes (Hospitalization)
  Sender: FDA-Public Use
  Company Number: IE-MEDIMMUNE-MEDI-0014106

PATIENT
  Sex: Male
  Weight: 6.1 kg

DRUGS (6)
  1. FERROUS SULFATE TAB [Concomitant]
  2. SYNAGIS [Suspect]
     Route: 030
     Dates: start: 20111101, end: 20111101
  3. OMEPRAZOLE MAGNESIUM [Concomitant]
  4. KAPSOVIT [Concomitant]
  5. SYNAGIS [Suspect]
     Route: 030
  6. ERGOCALCIFEROL [Concomitant]

REACTIONS (2)
  - BRONCHIOLITIS [None]
  - WHEEZING [None]
